FAERS Safety Report 9354791 (Version 2)
Quarter: 2013Q3

REPORT INFORMATION
  Report Type: Spontaneous
  Country: US (occurrence: US)
  Receive Date: 20130619
  Receipt Date: 20130709
  Transmission Date: 20140515
  Serious: No
  Sender: FDA-Public Use
  Company Number: US-009507513-1306USA004687

PATIENT
  Sex: Female
  Weight: 72.56 kg

DRUGS (4)
  1. NASONEX [Suspect]
     Indication: HYPERSENSITIVITY
     Dosage: 2 SPRAY IN EACH NOSTRIL
     Route: 045
  2. AMLODIPINE [Concomitant]
  3. PRAVASTATIN SODIUM [Concomitant]
  4. OXYBUTYNIN [Concomitant]

REACTIONS (1)
  - Parosmia [Recovering/Resolving]
